FAERS Safety Report 11239802 (Version 1)
Quarter: 2015Q3

REPORT INFORMATION
  Report Type: Spontaneous
  Country: US (occurrence: None)
  Receive Date: 20150701
  Receipt Date: 20150701
  Transmission Date: 20151125
  Serious: No
  Sender: FDA-Public Use
  Company Number: None

PATIENT
  Age: 40 Year
  Sex: Female
  Weight: 55.79 kg

DRUGS (4)
  1. BUPROPION ST 150 MG MYLAN [Suspect]
     Active Substance: BUPROPION
     Indication: SMOKING CESSATION THERAPY
     Dosage: BY MOUTH
     Dates: start: 20150510, end: 20150629
  2. IUD NOS [Concomitant]
     Active Substance: COPPER OR LEVONORGESTREL
  3. ERYTHROMYCIN. [Concomitant]
     Active Substance: ERYTHROMYCIN
  4. BUPROPION ST 150 MG MYLAN [Suspect]
     Active Substance: BUPROPION
     Indication: AFFECTIVE DISORDER
     Dosage: BY MOUTH
     Dates: start: 20150510, end: 20150629

REACTIONS (2)
  - Alopecia [None]
  - Drug interaction [None]

NARRATIVE: CASE EVENT DATE: 20150622
